FAERS Safety Report 4866990-8 (Version None)
Quarter: 2005Q4

REPORT INFORMATION
  Report Type: 
  Country: None (occurrence: None)
  Receive Date: 20051227
  Receipt Date: 20040903
  Transmission Date: 20060501
  Serious: Yes (Hospitalization, Other)
  Sender: FDA-Public Use
  Company Number: US-MERCK-0409USA00275

PATIENT
  Age: 71 Year
  Sex: Female
  Weight: 74 kg

DRUGS (49)
  1. VERAPAMIL [Concomitant]
     Route: 065
  2. VICODIN [Concomitant]
     Route: 065
  3. VIOXX [Suspect]
     Indication: PAIN IN EXTREMITY
     Route: 048
     Dates: start: 19990830, end: 20000101
  4. VIOXX [Suspect]
     Route: 048
     Dates: start: 20000101, end: 20020101
  5. VIOXX [Suspect]
     Route: 048
     Dates: start: 20020101, end: 20040901
  6. VIOXX [Suspect]
     Indication: POST POLIO SYNDROME
     Route: 048
     Dates: start: 19990830, end: 20000101
  7. VIOXX [Suspect]
     Route: 048
     Dates: start: 20000101, end: 20020101
  8. VIOXX [Suspect]
     Route: 048
     Dates: start: 20020101, end: 20040901
  9. ZETIA [Concomitant]
     Route: 048
  10. LOTREL [Concomitant]
     Indication: HYPERTENSION
     Route: 065
     Dates: start: 20010416, end: 20010731
  11. LOTREL [Concomitant]
     Route: 065
     Dates: start: 20040804, end: 20040804
  12. ZANAFLEX [Concomitant]
     Route: 065
  13. SKELAXIN [Concomitant]
     Route: 065
  14. PHENERGAN (PROMETHAZINE HYDROCHLORIDE) [Concomitant]
     Route: 065
  15. PERCOCET [Concomitant]
     Route: 065
  16. PREVACID [Concomitant]
     Route: 065
  17. DIOVAN [Concomitant]
     Indication: HYPERTENSION
     Route: 065
     Dates: start: 19980622, end: 20000612
  18. NORVASC [Concomitant]
     Indication: HYPERTENSION
     Route: 065
     Dates: start: 19980114, end: 20001129
  19. PLAVIX [Concomitant]
     Indication: CEREBROVASCULAR ACCIDENT PROPHYLAXIS
     Route: 065
     Dates: start: 19980701
  20. LIPITOR [Concomitant]
     Indication: BLOOD CHOLESTEROL INCREASED
     Route: 065
     Dates: start: 19980415, end: 20010404
  21. PREMARIN [Concomitant]
     Indication: MENOPAUSE
     Route: 065
     Dates: start: 19970816, end: 20030120
  22. NORFLEX [Concomitant]
     Route: 065
     Dates: start: 19990830
  23. HYDROCHLOROTHIAZIDE [Concomitant]
     Indication: HYPERTENSION
     Route: 065
     Dates: start: 20010425, end: 20010725
  24. SYNTHROID [Concomitant]
     Indication: HYPOTHYROIDISM
     Route: 065
  25. ALLEGRA [Concomitant]
     Route: 065
  26. AMOXICILLIN [Concomitant]
     Route: 065
  27. AVELOX [Concomitant]
     Route: 065
  28. BETAMETHASONE [Concomitant]
     Route: 065
  29. CARISOPRODOL [Concomitant]
     Route: 065
     Dates: start: 20030404
  30. CEDAX [Concomitant]
     Route: 065
  31. CEPHALEXIN [Concomitant]
     Route: 065
  32. CITRUCEL [Concomitant]
     Route: 065
  33. CYCLOBENZAPRINE HYDROCHLORIDE [Concomitant]
     Route: 065
     Dates: start: 20040304
  34. DYNABAC [Concomitant]
     Route: 065
  35. VITAMIN D (UNSPECIFIED) [Concomitant]
     Route: 065
  36. HYDROCODONE BITARTRATE [Concomitant]
     Indication: PAIN
     Route: 065
     Dates: start: 20030531
  37. IBUPROFEN [Concomitant]
     Route: 065
     Dates: start: 20030404
  38. LOPID [Concomitant]
     Route: 065
  39. MAXAIR [Concomitant]
     Route: 065
  40. METHYLPREDNISOLONE [Concomitant]
     Route: 065
     Dates: start: 20000209
  41. NASONEX [Concomitant]
     Route: 065
  42. NITRO [Concomitant]
     Route: 065
  43. OXYCODONE [Concomitant]
     Route: 065
     Dates: start: 20010111
  44. PANMIST LA [Concomitant]
     Route: 065
  45. PRILOSEC [Concomitant]
     Route: 065
  46. SULFAMETHOXAZOLE AND TRIMETHOPRIM [Concomitant]
     Route: 065
  47. TRICOR [Concomitant]
     Route: 065
  48. TYLENOL [Concomitant]
     Route: 065
  49. TUSSIONEX [Concomitant]
     Route: 065

REACTIONS (22)
  - BLOOD CREATINE PHOSPHOKINASE INCREASED [None]
  - CARDIAC ANEURYSM [None]
  - CATHETER SITE HAEMORRHAGE [None]
  - CEREBROVASCULAR ACCIDENT [None]
  - COLITIS ISCHAEMIC [None]
  - COMPLICATED MIGRAINE [None]
  - CORONARY ARTERY DISEASE [None]
  - CORONARY ARTERY RESTENOSIS [None]
  - DIABETES MELLITUS NON-INSULIN-DEPENDENT [None]
  - DIVERTICULITIS [None]
  - DRUG HYPERSENSITIVITY [None]
  - FATIGUE [None]
  - FEAR [None]
  - HYPERSENSITIVITY [None]
  - HYPERTRIGLYCERIDAEMIA [None]
  - INTERVERTEBRAL DISC DEGENERATION [None]
  - INTERVERTEBRAL DISC DISORDER [None]
  - MYOCARDIAL INFARCTION [None]
  - RECTAL POLYP [None]
  - REFLUX OESOPHAGITIS [None]
  - SYNOVIAL CYST [None]
  - TRANSIENT ISCHAEMIC ATTACK [None]
